FAERS Safety Report 4870121-8 (Version None)
Quarter: 2005Q4

REPORT INFORMATION
  Report Type: 
  Country: None (occurrence: None)
  Receive Date: 20051229
  Receipt Date: 20051229
  Transmission Date: 20060501
  Serious: Yes (Death)
  Sender: FDA-Public Use
  Company Number: None

PATIENT
  Sex: Male
  Weight: 9.7 kg

DRUGS (1)
  1. ABELCET [Suspect]
     Indication: ANTIFUNGAL PROPHYLAXIS
     Dosage: 50 MG TOTAL VOLUME OVER 4 HOURS; IV
     Route: 042

REACTIONS (4)
  - CEREBRAL INFARCTION [None]
  - HAEMODYNAMIC INSTABILITY [None]
  - INFUSION RELATED REACTION [None]
  - RESPIRATORY FAILURE [None]
